FAERS Safety Report 7025420-0 (Version None)
Quarter: 2010Q4

REPORT INFORMATION
  Report Type: 
  Country: None (occurrence: None)
  Receive Date: 20101001
  Receipt Date: 20100924
  Transmission Date: 20110411
  Serious: Yes (Other)
  Sender: FDA-Public Use
  Company Number: PHHY2010IE53002

PATIENT
  Sex: Female

DRUGS (7)
  1. ACLASTA [Suspect]
     Indication: RHEUMATOID ARTHRITIS
     Dosage: 5 MG ANNUALLY
     Route: 042
     Dates: start: 20091101
  2. CALCIUM [Concomitant]
     Dosage: 3D FORTE
  3. DONA [Concomitant]
     Dosage: UNK
  4. PRILOSEC [Concomitant]
     Dosage: 20 MG, UNK
  5. DAKTARIN [Concomitant]
     Dosage: UNK
  6. ANTIBIOTICS [Concomitant]
     Dosage: UNK
  7. OMACOR [Concomitant]
     Dosage: 10 MG, UNK

REACTIONS (8)
  - HAEMANGIOMA [None]
  - MELANOCYTIC NAEVUS [None]
  - OEDEMA PERIPHERAL [None]
  - PAIN IN EXTREMITY [None]
  - SKIN DISCOLOURATION [None]
  - TOOTH LOSS [None]
  - VEIN DISORDER [None]
  - VENOUS PRESSURE INCREASED [None]
